FAERS Safety Report 4588005-1 (Version None)
Quarter: 2005Q1

REPORT INFORMATION
  Report Type: 
  Country: None (occurrence: None)
  Receive Date: 20050215
  Receipt Date: 20050202
  Transmission Date: 20050727
  Serious: Yes (Hospitalization)
  Sender: FDA-Public Use
  Company Number: 2005024915

PATIENT

DRUGS (2)
  1. HYDROCORTISONE [Suspect]
     Indication: ILL-DEFINED DISORDER
     Dates: start: 20050202
  2. LORAZEPAM [Concomitant]

REACTIONS (1)
  - ANAPHYLACTIC SHOCK [None]
